FAERS Safety Report 14744919 (Version 1)
Quarter: 2018Q2

REPORT INFORMATION
  Report Type: Spontaneous
  Country: US (occurrence: US)
  Receive Date: 20180411
  Receipt Date: 20180411
  Transmission Date: 20180711
  Serious: Yes (Hospitalization)
  Sender: FDA-Public Use
  Company Number: US-TORRENT-00006024

PATIENT
  Age: 29 Year
  Sex: Male

DRUGS (1)
  1. RISPERIDONE. [Suspect]
     Active Substance: RISPERIDONE
     Indication: PRODUCT USED FOR UNKNOWN INDICATION
     Dosage: UNKNOWN

REACTIONS (4)
  - Blood creatine phosphokinase increased [Unknown]
  - Respiratory muscle weakness [Recovered/Resolved]
  - Muscular weakness [Recovered/Resolved]
  - Dyspnoea [Recovered/Resolved]
